FAERS Safety Report 10182954 (Version 1)
Quarter: 2014Q2

REPORT INFORMATION
  Report Type: Spontaneous
  Country: US (occurrence: US)
  Receive Date: 20140520
  Receipt Date: 20140520
  Transmission Date: 20141212
  Serious: No
  Sender: FDA-Public Use
  Company Number: US-009507513-1405USA004117

PATIENT
  Sex: Female

DRUGS (1)
  1. NUVARING [Suspect]
     Indication: CONTRACEPTION
     Dosage: DOSE/FREQUENCY-3 WEEK IN 1 WEEK RING FREE BREAK
     Route: 067
     Dates: start: 20140429

REACTIONS (2)
  - Amenorrhoea [Unknown]
  - Muscle spasms [Unknown]
